FAERS Safety Report 7601980-3 (Version None)
Quarter: 2011Q3

REPORT INFORMATION
  Report Type: 
  Country: None (occurrence: None)
  Receive Date: 20110711
  Receipt Date: 20110707
  Transmission Date: 20111222
  Serious: Yes (Other)
  Sender: FDA-Public Use
  Company Number: CN-PFIZER INC-2011139004

PATIENT
  Age: 78 Year

DRUGS (4)
  1. IDEBENONE [Suspect]
     Dosage: 30 MG, 3X/DAY
  2. MADOPAR [Suspect]
     Dosage: 125 MG, 3X/DAY
  3. NIMOTOP [Suspect]
     Dosage: 30 MG, 3X/DAY
  4. ZOLOFT [Suspect]
     Dosage: 50 MG, 1X/DAY
     Route: 048
     Dates: end: 20110622

REACTIONS (2)
  - MIOSIS [None]
  - COMA [None]
